FAERS Safety Report 23158591 (Version 1)
Quarter: 2023Q4

REPORT INFORMATION
  Report Type: Spontaneous
  Country: US (occurrence: US)
  Receive Date: 20231108
  Receipt Date: 20231108
  Transmission Date: 20240110
  Serious: No
  Sender: FDA-Public Use
  Company Number: US-TAKEDA-2023TUS107915

PATIENT
  Sex: Female
  Weight: 57 kg

DRUGS (1)
  1. GAMMAGARD LIQUID [Suspect]
     Active Substance: HUMAN IMMUNOGLOBULIN G
     Indication: Multiple sclerosis
     Dosage: 25 GRAM, Q4WEEKS
     Route: 042

REACTIONS (3)
  - Product temperature excursion issue [Unknown]
  - Product storage error [Unknown]
  - Off label use [Unknown]
